FAERS Safety Report 7046955-0 (Version None)
Quarter: 2010Q4

REPORT INFORMATION
  Report Type: 
  Country: None (occurrence: None)
  Receive Date: 20101015
  Receipt Date: 20101007
  Transmission Date: 20110411
  Serious: Yes (Other)
  Sender: FDA-Public Use
  Company Number: HK-BRISTOL-MYERS SQUIBB COMPANY-15207830

PATIENT
  Age: 51 Year
  Sex: Male
  Weight: 57 kg

DRUGS (8)
  1. CETUXIMAB [Suspect]
     Indication: GASTROOESOPHAGEAL CANCER
     Dosage: FIRST INFUSION ON 28APR2009,RECENT INF ON17JUN2010(16TH).400MG/M2(=80ML/M2)120MIN AT 1ST INFUSION.
     Route: 042
     Dates: start: 20090428, end: 20100713
  2. CISPLATIN [Suspect]
     Indication: GASTROOESOPHAGEAL CANCER
     Dosage: 80MG/M2:1TO4 HR;DAY 1 OF CYCLE;RECENT INF ON 19AUG09.
     Route: 042
     Dates: start: 20090428, end: 20090819
  3. XELODA [Suspect]
     Indication: GASTROOESOPHAGEAL CANCER
     Dosage: DAY 1-15;RECENT-02SEP09; FORM: TABLET.
     Route: 048
     Dates: start: 20090428, end: 20090902
  4. OFLOXACIN [Concomitant]
     Indication: PROPHYLAXIS
     Dosage: FORMULATION; EAR DROPS 1DF=12GTT.
     Dates: start: 20091124
  5. FAMOTIDINE [Concomitant]
     Indication: PROPHYLAXIS
     Dosage: END ON 25MAY2010,RESTARTED ON 09JUN2010 ,ONG.
     Route: 048
     Dates: start: 20100518
  6. BENZOYL PEROXIDE [Concomitant]
     Dosage: CREAM
     Route: 061
     Dates: start: 20100428, end: 20100504
  7. DIMETHYLPOLYSILOXANE [Concomitant]
     Dosage: END ON 17FEB2010,RESTARTED ON 28APR2010.
     Route: 048
     Dates: start: 20100210, end: 20100504
  8. MOMETASONE FUROATE [Concomitant]
     Dosage: CREAM.END ON 10MAR2010,RESTARTED ON 09JUN2010 ,ONG.
     Route: 061
     Dates: start: 20100304

REACTIONS (1)
  - ELECTROCARDIOGRAM QT PROLONGED [None]
